FAERS Safety Report 14342228 (Version 1)
Quarter: 2018Q1

REPORT INFORMATION
  Report Type: Other
  Country: MX (occurrence: MX)
  Receive Date: 20180102
  Receipt Date: 20180102
  Transmission Date: 20180509
  Serious: Yes (Life-Threatening, Hospitalization)
  Sender: FDA-Public Use
  Company Number: MX-ATLAS PHARMACEUTICALS, LLC-2038151

PATIENT
  Age: 74 Year
  Sex: Male

DRUGS (2)
  1. GLIBENCLAMIDE [Concomitant]
     Active Substance: GLYBURIDE
     Route: 065
  2. METFORMIN [Suspect]
     Active Substance: METFORMIN HYDROCHLORIDE
     Indication: TYPE 2 DIABETES MELLITUS

REACTIONS (7)
  - Suicide attempt [Recovering/Resolving]
  - Acute kidney injury [Recovering/Resolving]
  - Epistaxis [Recovering/Resolving]
  - Toxicity to various agents [Recovering/Resolving]
  - Multiple organ dysfunction syndrome [Recovering/Resolving]
  - Intentional overdose [Recovering/Resolving]
  - Lactic acidosis [Recovering/Resolving]
